FAERS Safety Report 13670367 (Version 1)
Quarter: 2017Q2

REPORT INFORMATION
  Report Type: Spontaneous
  Country: AT (occurrence: AT)
  Receive Date: 20170620
  Receipt Date: 20170620
  Transmission Date: 20170830
  Serious: Yes (Hospitalization)
  Sender: FDA-Public Use
  Company Number: AT-SA-2017SA110002

PATIENT
  Sex: Male

DRUGS (3)
  1. ASPIRIN. [Suspect]
     Active Substance: ASPIRIN
     Route: 065
  2. DABIGATRAN [Suspect]
     Active Substance: DABIGATRAN
     Route: 065
  3. CLOPIDOGREL BISULFATE. [Suspect]
     Active Substance: CLOPIDOGREL BISULFATE
     Route: 048

REACTIONS (5)
  - Retroperitoneal haematoma [Recovering/Resolving]
  - Acute abdomen [Recovering/Resolving]
  - Arterial haemorrhage [Recovering/Resolving]
  - Anaemia [Recovering/Resolving]
  - Peritonitis [Recovering/Resolving]
